FAERS Safety Report 24861147 (Version 2)
Quarter: 2025Q1

REPORT INFORMATION
  Report Type: Spontaneous
  Country: US (occurrence: US)
  Receive Date: 20250120
  Receipt Date: 20250128
  Transmission Date: 20250409
  Serious: Yes (Other)
  Sender: ABBVIE
  Company Number: US-ABBVIE-6091449

PATIENT
  Sex: Male

DRUGS (2)
  1. SAVELLA [Suspect]
     Active Substance: MILNACIPRAN HYDROCHLORIDE
     Indication: Fibromyalgia
     Route: 065
  2. SAVELLA [Suspect]
     Active Substance: MILNACIPRAN HYDROCHLORIDE
     Indication: Fibromyalgia
     Dosage: INCREASED DOSE
     Route: 065

REACTIONS (7)
  - Serotonin syndrome [Unknown]
  - Depression [Unknown]
  - Heart rate increased [Unknown]
  - Chest pain [Unknown]
  - Insomnia [Unknown]
  - Hot flush [Unknown]
  - Anxiety [Unknown]
